FAERS Safety Report 21155543 (Version 1)
Quarter: 2022Q3

REPORT INFORMATION
  Report Type: Spontaneous
  Country: None (occurrence: TN)
  Receive Date: 20220801
  Receipt Date: 20220801
  Transmission Date: 20221027
  Serious: Yes (Hospitalization)
  Sender: FDA-Public Use
  Company Number: TN-Oxford Pharmaceuticals, LLC-2131410

PATIENT
  Age: 53 Year
  Sex: Female

DRUGS (1)
  1. CAPTOPRIL [Suspect]
     Active Substance: CAPTOPRIL
     Indication: Hypertension

REACTIONS (2)
  - Drug eruption [Recovered/Resolved]
  - Lichenoid keratosis [Recovered/Resolved]
